FAERS Safety Report 10149414 (Version 1)
Quarter: 2014Q2

REPORT INFORMATION
  Report Type: Spontaneous
  Country: US (occurrence: None)
  Receive Date: 20140430
  Receipt Date: 20140430
  Transmission Date: 20141212
  Serious: No
  Sender: FDA-Public Use
  Company Number: None

PATIENT
  Age: 79 Year
  Sex: Male

DRUGS (2)
  1. ZYTIGA [Suspect]
     Indication: PRODUCT USED FOR UNKNOWN INDICATION
     Dates: start: 20140401, end: 20140425
  2. PREDNISONE [Suspect]
     Route: 048
     Dates: start: 20140401, end: 20140425

REACTIONS (2)
  - Gastrointestinal haemorrhage [None]
  - Oesophageal ulcer [None]
